FAERS Safety Report 8806778 (Version 1)
Quarter: 2012Q4

REPORT INFORMATION
  Report Type: 
  Country: US (occurrence: US)
  Receive Date: 20120925
  Receipt Date: 20120925
  Transmission Date: 20130627
  Serious: Yes (Hospitalization, Other)
  Sender: FDA-Public Use
  Company Number: US-ROCHE-1123296

PATIENT
  Sex: Female

DRUGS (5)
  1. AVASTIN [Suspect]
     Indication: MALIGNANT RESPIRATORY TRACT NEOPLASM
     Route: 065
  2. TAXOL [Concomitant]
  3. CARBOPLATIN [Concomitant]
  4. ADRIAMYCIN [Concomitant]
  5. MEGACE [Concomitant]

REACTIONS (2)
  - Respiratory failure [Unknown]
  - Disease progression [Unknown]
